FAERS Safety Report 16329043 (Version 2)
Quarter: 2019Q3

REPORT INFORMATION
  Report Type: Spontaneous
  Country: JP (occurrence: JP)
  Receive Date: 20190519
  Receipt Date: 20190918
  Transmission Date: 20191004
  Serious: Yes (Death)
  Sender: FDA-Public Use
  Company Number: JP-REGENERON PHARMACEUTICALS, INC.-2019-32623

PATIENT

DRUGS (14)
  1. EYLEA [Suspect]
     Active Substance: AFLIBERCEPT
     Dosage: 2MG(0.05ML),ONCE, RIGHT EYE
     Route: 031
     Dates: start: 20171201, end: 20171201
  2. EYLEA [Suspect]
     Active Substance: AFLIBERCEPT
     Dosage: 2MG(0.05ML),ONCE, RIGHT EYE
     Route: 031
     Dates: start: 20170907, end: 20170907
  3. EYLEA [Suspect]
     Active Substance: AFLIBERCEPT
     Dosage: 2MG(0.05ML),ONCE, LEFT EYE
     Route: 031
     Dates: start: 20170616, end: 20170616
  4. EYLEA [Suspect]
     Active Substance: AFLIBERCEPT
     Dosage: 2MG(0.05ML),ONCE, RIGHT EYE
     Route: 031
     Dates: start: 20180222, end: 20180222
  5. EYLEA [Suspect]
     Active Substance: AFLIBERCEPT
     Indication: RETINAL VEIN OCCLUSION
     Dosage: 2 MG, ONCE, RIGHT EYE
     Route: 031
     Dates: start: 20160909, end: 20160909
  6. EYLEA [Suspect]
     Active Substance: AFLIBERCEPT
     Indication: DIABETIC RETINAL OEDEMA
     Dosage: 2MG(0.05ML),ONCE, LEFT EYE
     Route: 031
     Dates: start: 20160915, end: 20160915
  7. EYLEA [Suspect]
     Active Substance: AFLIBERCEPT
     Dosage: 2MG(0.05ML),ONCE, LEFT EYE
     Route: 031
     Dates: start: 20160309, end: 20160309
  8. EYLEA [Suspect]
     Active Substance: AFLIBERCEPT
     Dosage: 2MG(0.05ML),ONCE, LEFT EYE
     Route: 031
     Dates: start: 20170913, end: 20170913
  9. EYLEA [Suspect]
     Active Substance: AFLIBERCEPT
     Indication: MACULAR OEDEMA
     Dosage: 2MG(0.05ML),ONCE, LEFT EYE
     Route: 031
     Dates: start: 20161221, end: 20161221
  10. EYLEA [Suspect]
     Active Substance: AFLIBERCEPT
     Dosage: 2MG(0.05ML),ONCE, RIGHT EYE
     Route: 031
     Dates: start: 20170609, end: 20170609
  11. EYLEA [Suspect]
     Active Substance: AFLIBERCEPT
     Indication: DIABETIC RETINOPATHY
     Dosage: 2MG(0.05ML),ONCE, RIGHT EYE
     Route: 031
     Dates: start: 20161215, end: 20161215
  12. EYLEA [Suspect]
     Active Substance: AFLIBERCEPT
     Dosage: 2MG(0.05ML),ONCE, LEFT EYE
     Route: 031
     Dates: start: 20171206, end: 20171206
  13. EYLEA [Suspect]
     Active Substance: AFLIBERCEPT
     Dosage: 2MG(0.05ML),ONCE, RIGHT EYE
     Route: 031
     Dates: start: 20180531, end: 20180531
  14. EYLEA [Suspect]
     Active Substance: AFLIBERCEPT
     Dosage: 2MG(0.05ML),ONCE, RIGHT EYE
     Route: 031
     Dates: start: 20170302, end: 20170302

REACTIONS (1)
  - Cerebral haemorrhage [Fatal]

NARRATIVE: CASE EVENT DATE: 20180731
